FAERS Safety Report 5719043-0 (Version None)
Quarter: 2008Q2

REPORT INFORMATION
  Report Type: 
  Country: None (occurrence: None)
  Receive Date: 20080423
  Receipt Date: 20080409
  Transmission Date: 20081010
  Serious: Yes (Hospitalization)
  Sender: FDA-Public Use
  Company Number: 220003M08CAN

PATIENT
  Age: 14 Year
  Sex: Female
  Weight: 36.5 kg

DRUGS (3)
  1. SAIZEN [Suspect]
     Indication: GROWTH RETARDATION
     Dosage: SEE IMAGE
     Route: 058
     Dates: start: 20060901, end: 20071001
  2. SAIZEN [Suspect]
     Indication: GROWTH RETARDATION
     Dosage: SEE IMAGE
     Route: 058
     Dates: start: 20071001, end: 20080201
  3. SAIZEN [Suspect]
     Indication: GROWTH RETARDATION
     Dosage: SEE IMAGE
     Route: 058
     Dates: start: 20080218, end: 20080401

REACTIONS (3)
  - DYSPNOEA [None]
  - PULMONARY HYPERTENSION [None]
  - VENTRICULAR DYSFUNCTION [None]
